FAERS Safety Report 20249535 (Version 1)
Quarter: 2021Q4

REPORT INFORMATION
  Report Type: Spontaneous
  Country: US (occurrence: None)
  Receive Date: 20211229
  Receipt Date: 20211229
  Transmission Date: 20220303
  Serious: Yes (Other)
  Sender: FDA-Public Use
  Company Number: US-Hikma Pharmaceuticals USA Inc.-US-H14001-21-05555

PATIENT
  Age: 28 Year
  Sex: Female

DRUGS (15)
  1. FENTANYL [Suspect]
     Active Substance: FENTANYL
     Indication: Epidural anaesthesia
     Dosage: 5 MG/ML
     Route: 008
  2. LIDOCAINE [Suspect]
     Active Substance: LIDOCAINE
     Indication: Local anaesthesia
     Dosage: UNKNOWN
     Route: 061
  3. METOPROLOL [Suspect]
     Active Substance: METOPROLOL
     Indication: Hypertrophic cardiomyopathy
     Dosage: UNKNOWN
     Route: 065
  4. MIDAZOLAM [Suspect]
     Active Substance: MIDAZOLAM
     Indication: Sedative therapy
     Dosage: UNKNOWN
     Route: 042
  5. PROPOFOL [Suspect]
     Active Substance: PROPOFOL
     Indication: General anaesthesia
     Dosage: UNKNOWN
     Route: 042
  6. ROCURONIUM [Suspect]
     Active Substance: ROCURONIUM BROMIDE
     Indication: Neuromuscular blocking therapy
     Dosage: UNKNOWN
     Route: 042
  7. SODIUM CHLORIDE [Suspect]
     Active Substance: SODIUM CHLORIDE
     Indication: Epidural anaesthesia
     Dosage: 3 ML
     Route: 008
  8. LIDOCAINE [Suspect]
     Active Substance: LIDOCAINE
     Indication: Epidural anaesthesia
     Dosage: 3 ML
     Route: 008
  9. VERAPAMIL [Concomitant]
     Active Substance: VERAPAMIL HYDROCHLORIDE
     Indication: Hypertrophic cardiomyopathy
     Dosage: UNKNOWN
     Route: 065
  10. SALINE [Concomitant]
     Active Substance: SODIUM CHLORIDE
     Indication: Epidural anaesthesia
     Dosage: UNKNOWN
     Route: 065
  11. REMIFENTANIL [Concomitant]
     Active Substance: REMIFENTANIL
     Indication: Sedative therapy
     Dosage: LOW-DOSE
     Route: 042
  12. LIDOCAINE [Concomitant]
     Active Substance: LIDOCAINE
     Indication: Local anaesthesia
     Dosage: UNKNOWN
     Route: 061
  13. SEVOFLURANE [Concomitant]
     Active Substance: SEVOFLURANE
     Indication: General anaesthesia
     Dosage: UNKNOWN
     Route: 065
  14. REMIFENTANIL [Concomitant]
     Active Substance: REMIFENTANIL
     Indication: General anaesthesia
     Dosage: UNKNOWN
     Route: 065
  15. SODIUM BICARBONATE [Suspect]
     Active Substance: SODIUM BICARBONATE

REACTIONS (4)
  - Maternal exposure during pregnancy [Unknown]
  - Back pain [Unknown]
  - Extradural haematoma [Unknown]
  - Cardiac output decreased [Unknown]
